FAERS Safety Report 5889529-7 (Version None)
Quarter: 2008Q3

REPORT INFORMATION
  Report Type: 
  Country: None (occurrence: None)
  Receive Date: 20080919
  Receipt Date: 20080912
  Transmission Date: 20090109
  Serious: Yes (Hospitalization)
  Sender: FDA-Public Use
  Company Number: FR-AVENTIS-200813286FR

PATIENT
  Age: 81 Year
  Sex: Female

DRUGS (7)
  1. LASIX [Suspect]
     Route: 048
     Dates: end: 20080812
  2. LOVENOX [Suspect]
     Indication: THROMBOSIS PROPHYLAXIS
     Route: 058
     Dates: end: 20080807
  3. CORDARONE [Suspect]
     Indication: ARRHYTHMIA
     Route: 048
     Dates: end: 20080812
  4. ZYVOXID [Suspect]
     Indication: OSTEITIS
     Route: 048
     Dates: start: 20080722, end: 20080806
  5. FUCIDINE                           /00065702/ [Suspect]
     Indication: OSTEITIS
     Route: 048
     Dates: start: 20080722, end: 20080806
  6. OGAST [Suspect]
     Indication: GASTRITIS
     Route: 048
     Dates: end: 20080805
  7. LOXEN [Suspect]
     Route: 048
     Dates: end: 20080814

REACTIONS (2)
  - JAUNDICE CHOLESTATIC [None]
  - THROMBOCYTOPENIA [None]
